FAERS Safety Report 7294836-X (Version None)
Quarter: 2011Q1

REPORT INFORMATION
  Report Type: 
  Country: None (occurrence: None)
  Receive Date: 20110216
  Receipt Date: 20110207
  Transmission Date: 20110831
  Serious: Yes (Hospitalization)
  Sender: FDA-Public Use
  Company Number: FR-JNJFOC-20101206608

PATIENT
  Sex: Male
  Weight: 74 kg

DRUGS (3)
  1. REMICADE [Suspect]
     Indication: COLITIS ULCERATIVE
     Route: 042
  2. IMUREL [Concomitant]
     Indication: COLITIS ULCERATIVE
     Route: 048
  3. PENTASA [Concomitant]
     Indication: COLITIS ULCERATIVE

REACTIONS (1)
  - LUPUS-LIKE SYNDROME [None]
